FAERS Safety Report 9281492 (Version 1)
Quarter: 2013Q2

REPORT INFORMATION
  Report Type: Spontaneous
  Country: US (occurrence: US)
  Receive Date: 20130509
  Receipt Date: 20130509
  Transmission Date: 20140414
  Serious: No
  Sender: FDA-Public Use
  Company Number: US-ASTRAZENECA-2013SE28573

PATIENT
  Age: 60 Year
  Sex: Female
  Weight: 90.7 kg

DRUGS (10)
  1. ENTOCORT EC CAPSULES [Suspect]
     Indication: CROHN^S DISEASE
     Route: 048
  2. OMEPRAZOLE [Suspect]
     Route: 048
  3. MERCAPTOPURINE [Concomitant]
  4. VESICARE [Concomitant]
  5. NOVALOG [Concomitant]
  6. SULFADIAZINE [Concomitant]
  7. SULFAMETHOXAZOLE-TRIME [Concomitant]
  8. SIMVASTATIN [Concomitant]
  9. GLYBURIDE [Concomitant]
  10. LANTUS [Concomitant]

REACTIONS (1)
  - Blood glucose increased [Unknown]
